FAERS Safety Report 9908059 (Version 1)
Quarter: 2014Q1

REPORT INFORMATION
  Report Type: Report from Study
  Country: US (occurrence: US)
  Receive Date: 20140219
  Receipt Date: 20140219
  Transmission Date: 20141002
  Serious: Yes (Other)
  Sender: FDA-Public Use
  Company Number: US-ROCHE-1350636

PATIENT
  Sex: Female

DRUGS (12)
  1. AVASTIN [Suspect]
     Indication: DIABETIC RETINAL OEDEMA
     Route: 065
  2. PREDNISOLONE [Concomitant]
     Dosage: OS
     Route: 065
     Dates: start: 20121106
  3. KETOROLAC TROMETHAMINE [Concomitant]
     Dosage: OS
     Route: 065
     Dates: start: 20121106
  4. VIGAMOX [Concomitant]
     Dosage: OS
     Route: 065
     Dates: start: 20120718
  5. ACTIVELLA [Concomitant]
     Dosage: 0.5-0.1 MG
     Route: 065
  6. ALBUTEROL SULFATE [Concomitant]
     Route: 065
  7. LIDEX [Concomitant]
     Route: 065
  8. NASONEX [Concomitant]
     Route: 065
  9. NOVOLOG [Concomitant]
     Dosage: 100 UNIT/ML
     Route: 065
  10. LISINOPRIL [Concomitant]
     Route: 065
  11. NEXIUM [Concomitant]
     Route: 065
  12. MYDRIACYL [Concomitant]
     Dosage: OU
     Route: 065

REACTIONS (6)
  - Eye irritation [Unknown]
  - Macular oedema [Unknown]
  - Macular cyst [Unknown]
  - Visual acuity reduced [Unknown]
  - Metamorphopsia [Unknown]
  - Off label use [Unknown]
